FAERS Safety Report 8364075-X (Version None)
Quarter: 2012Q2

REPORT INFORMATION
  Report Type: 
  Country: None (occurrence: None)
  Receive Date: 20120516
  Receipt Date: 20120307
  Transmission Date: 20120825
  Serious: No
  Sender: FDA-Public Use
  Company Number: US-ALEXION-A201200420

PATIENT
  Sex: Female
  Weight: 43.991 kg

DRUGS (2)
  1. LOVENOX [Concomitant]
     Dosage: UNK
  2. SOLIRIS [Suspect]
     Indication: HAEMOLYTIC URAEMIC SYNDROME
     Dosage: UNK, BI-WEEKLY
     Route: 042

REACTIONS (3)
  - STRESS [None]
  - ALOPECIA [None]
  - COLOSTOMY [None]
